FAERS Safety Report 22133269 (Version 1)
Quarter: 2023Q1

REPORT INFORMATION
  Report Type: Spontaneous
  Country: IT (occurrence: IT)
  Receive Date: 20230324
  Receipt Date: 20230324
  Transmission Date: 20230418
  Serious: Yes (Hospitalization)
  Sender: FDA-Public Use
  Company Number: None

PATIENT
  Age: 72 Year
  Sex: Male

DRUGS (7)
  1. METFORMIN HYDROCHLORIDE [Suspect]
     Active Substance: METFORMIN HYDROCHLORIDE
     Indication: Type 2 diabetes mellitus
     Dosage: 2000 MG (DOSAGGIO: 2000UNITA DI MISURA: MILLIGRAMMI FREQUENZA SOMMINISTRAZIONE: QUOTIDIANA)
     Route: 048
  2. SIMVASTATIN [Concomitant]
     Active Substance: SIMVASTATIN
     Indication: Hypercholesterolaemia
     Dosage: 20 MG, (DOSAGGIO: 20UNITA DI MISURA: MILLIGRAMMI VIA SOMMINISTRAZIONE: ORALE)
     Route: 048
  3. BISOPROLOL FUMARATE [Concomitant]
     Active Substance: BISOPROLOL FUMARATE
     Indication: Hypertension
     Dosage: 2.5 MG (DOSAGGIO: 2.5UNITA DI MISURA: MILLIGRAMMI VIA SOMMINISTRAZIONE: ORALE)
     Route: 048
  4. FLECAINIDE ACETATE [Concomitant]
     Active Substance: FLECAINIDE ACETATE
     Indication: Arrhythmia
     Dosage: 100 MG (DOSAGGIO: 100UNITA DI MISURA: MILLIGRAMMI VIA SOMMINISTRAZIONE: ORALE)
     Route: 048
  5. ELIQUIS [Concomitant]
     Active Substance: APIXABAN
     Indication: Atrial fibrillation
     Dosage: 10 MG (DOSAGGIO: 10UNITA DI MISURA: MILLIGRAMMI)
     Route: 048
  6. RAMIPRIL [Concomitant]
     Active Substance: RAMIPRIL
     Indication: Hypertension
     Dosage: 5 MG (DOSAGGIO: 5UNITA DI MISURA: MILLIGRAMMI VIA SOMMINISTRAZIONE: ORALE)
     Route: 048
  7. ASPIRIN [Concomitant]
     Active Substance: ASPIRIN
     Indication: Thrombosis prophylaxis
     Dosage: 100 MG (DOSAGGIO: 100UNITA DI MISURA: MILLIGRAMMI VIA SOMMINISTRAZIONE: ORALE)
     Route: 048

REACTIONS (1)
  - Metabolic acidosis [Recovering/Resolving]

NARRATIVE: CASE EVENT DATE: 20230304
